FAERS Safety Report 14095397 (Version 4)
Quarter: 2018Q1

REPORT INFORMATION
  Report Type: Spontaneous
  Country: US (occurrence: US)
  Receive Date: 20171016
  Receipt Date: 20180307
  Transmission Date: 20180508
  Serious: Yes (Hospitalization, Other)
  Sender: FDA-Public Use
  Company Number: US-BIOMARINAP-US-2017-115731

PATIENT
  Sex: Male
  Weight: 11.5 kg

DRUGS (2)
  1. ALDURAZYME [Suspect]
     Active Substance: LARONIDASE
     Dosage: 0.58 MG/KG, QW
     Route: 041
     Dates: start: 20171002
  2. ALDURAZYME [Suspect]
     Active Substance: LARONIDASE
     Indication: MUCOPOLYSACCHARIDOSIS I
     Dosage: 0.58 MG/KG, QW
     Route: 041
     Dates: start: 20170824

REACTIONS (3)
  - Transplantation complication [Not Recovered/Not Resolved]
  - Device related infection [Recovering/Resolving]
  - Stem cell transplant [Not Recovered/Not Resolved]

NARRATIVE: CASE EVENT DATE: 2017
